FAERS Safety Report 6173785-4 (Version None)
Quarter: 2009Q2

REPORT INFORMATION
  Report Type: 
  Country: None (occurrence: None)
  Receive Date: 20090430
  Receipt Date: 20090422
  Transmission Date: 20091009
  Serious: Yes (Other)
  Sender: FDA-Public Use
  Company Number: PHHY2009MX15716

PATIENT
  Age: 47 Year
  Sex: Female

DRUGS (5)
  1. DIOVAN HCT [Suspect]
     Indication: HYPERTENSION
     Dosage: 320/12.5 MG PER DAY
     Route: 048
     Dates: start: 20070401
  2. NIFEDIPINE [Concomitant]
  3. INSULIN [Concomitant]
  4. ASPIRIN [Concomitant]
     Dosage: UNK
  5. ISOSORBIDE DINITRATE [Concomitant]

REACTIONS (2)
  - CONVULSION [None]
  - HYPERTENSION [None]
